FAERS Safety Report 17557916 (Version 2)
Quarter: 2020Q2

REPORT INFORMATION
  Report Type: Spontaneous
  Country: RU (occurrence: RU)
  Receive Date: 20200318
  Receipt Date: 20200402
  Transmission Date: 20200713
  Serious: Yes (Other)
  Sender: FDA-Public Use
  Company Number: RU-BAYER-2020-046163

PATIENT
  Age: 42 Year
  Sex: Female

DRUGS (2)
  1. VISANNE [Suspect]
     Active Substance: DIENOGEST
     Dosage: UNK
     Route: 048
     Dates: end: 201911
  2. MIRENA [Suspect]
     Active Substance: LEVONORGESTREL
     Indication: CONTRACEPTION
     Dosage: 20 ?G PER DAY CONTINOUSLY
     Route: 015
     Dates: start: 202003

REACTIONS (6)
  - Device breakage [None]
  - Complication of device insertion [None]
  - Abnormal withdrawal bleeding [None]
  - Device malfunction [None]
  - Device use issue [None]
  - Dysmenorrhoea [None]

NARRATIVE: CASE EVENT DATE: 202003
